FAERS Safety Report 16114558 (Version 2)
Quarter: 2019Q2

REPORT INFORMATION
  Report Type: Spontaneous
  Country: FR (occurrence: FR)
  Receive Date: 20190325
  Receipt Date: 20190412
  Transmission Date: 20190711
  Serious: Yes (Death)
  Sender: FDA-Public Use
  Company Number: FR-PFIZER INC-2019124022

PATIENT
  Age: 67 Year
  Sex: Male

DRUGS (7)
  1. ALDACTONE [Suspect]
     Active Substance: SPIRONOLACTONE
     Indication: HYPERTENSION
     Dosage: 50 MG, 1X/DAY
     Route: 048
     Dates: end: 201705
  2. KARDEGIC [Suspect]
     Active Substance: ASPIRIN DL-LYSINE
     Indication: PROPHYLAXIS
     Dosage: 75 MG, 1X/DAY
     Route: 048
     Dates: start: 2017, end: 201705
  3. FAMPYRA [Suspect]
     Active Substance: DALFAMPRIDINE
     Indication: MULTIPLE SCLEROSIS
     Dosage: 20 MG, 1X/DAY
     Route: 048
     Dates: start: 20140507, end: 20170424
  4. MANTADIX [Suspect]
     Active Substance: AMANTADINE HYDROCHLORIDE
     Dosage: 200 MG, 1X/DAY
     Route: 048
  5. CRESTOR [Suspect]
     Active Substance: ROSUVASTATIN CALCIUM
     Indication: DYSLIPIDAEMIA
     Dosage: 5 MG, 1X/DAY
     Route: 048
     Dates: start: 2017, end: 201705
  6. NEURONTIN [Suspect]
     Active Substance: GABAPENTIN
     Indication: NEURALGIA
     Dosage: 200 MG, 1X/DAY
     Route: 048
     Dates: start: 20140125, end: 20170424
  7. AUBAGIO [Suspect]
     Active Substance: TERIFLUNOMIDE
     Indication: MULTIPLE SCLEROSIS
     Dosage: 14 MG, 1X/DAY
     Route: 048
     Dates: start: 20150702, end: 20170424

REACTIONS (1)
  - Cholangiocarcinoma [Fatal]

NARRATIVE: CASE EVENT DATE: 20170419
